FAERS Safety Report 4841126-8 (Version None)
Quarter: 2005Q4

REPORT INFORMATION
  Report Type: 
  Country: None (occurrence: None)
  Receive Date: 20051130
  Receipt Date: 20051007
  Transmission Date: 20060501
  Serious: No
  Sender: FDA-Public Use
  Company Number: US-BRISTOL-MYERS SQUIBB COMPANY-13137633

PATIENT
  Age: 58 Year
  Sex: Female
  Weight: 91 kg

DRUGS (7)
  1. ABILIFY [Suspect]
  2. LISINOPRIL [Concomitant]
  3. LEXAPRO [Concomitant]
  4. WELLBUTRIN [Concomitant]
  5. NORTRIPTYLINE HCL [Concomitant]
  6. LEVOTHYROXINE SODIUM [Concomitant]
  7. ARIMIDEX [Concomitant]

REACTIONS (3)
  - BLOOD PRESSURE INCREASED [None]
  - HALLUCINATION, AUDITORY [None]
  - HEART RATE INCREASED [None]
